FAERS Safety Report 4778848-3 (Version None)
Quarter: 2005Q4

REPORT INFORMATION
  Report Type: 
  Country: None (occurrence: None)
  Receive Date: 20050922
  Receipt Date: 20050916
  Transmission Date: 20060501
  Serious: Yes (Hospitalization)
  Sender: FDA-Public Use
  Company Number: CA-2005-019347

PATIENT
  Age: 30 Year
  Sex: Female
  Weight: 53.5 kg

DRUGS (2)
  1. YASMIN [Suspect]
     Indication: MENSTRUATION IRREGULAR
     Dosage: 1X/DAY, ORAL
     Route: 048
     Dates: start: 20041101, end: 20040904
  2. CIPROFLOXACIN HCL [Suspect]
     Indication: CROHN'S DISEASE
     Dosage: 500 MG, 2X/DAY, ORAL
     Route: 048
     Dates: start: 20050101, end: 20050904

REACTIONS (4)
  - CULTURE URINE POSITIVE [None]
  - JOINT SWELLING [None]
  - RENAL FAILURE ACUTE [None]
  - RENAL TUBULAR NECROSIS [None]
